FAERS Safety Report 4469732-3 (Version None)
Quarter: 2004Q4

REPORT INFORMATION
  Report Type: 
  Country: None (occurrence: None)
  Receive Date: 20041008
  Receipt Date: 20041004
  Transmission Date: 20050328
  Serious: Yes (Hospitalization)
  Sender: FDA-Public Use
  Company Number: US-MERCK-0410USA00554

PATIENT
  Sex: Female

DRUGS (1)
  1. VIOXX [Suspect]
     Route: 048

REACTIONS (1)
  - CEREBROVASCULAR ACCIDENT [None]
